FAERS Safety Report 21895772 (Version 2)
Quarter: 2023Q1

REPORT INFORMATION
  Report Type: Spontaneous
  Country: US (occurrence: US)
  Receive Date: 20230123
  Receipt Date: 20230126
  Transmission Date: 20230417
  Serious: Yes (Hospitalization, Other)
  Sender: FDA-Public Use
  Company Number: US-BAXTER-2023BAX010712

PATIENT
  Age: 27 Year
  Sex: Female

DRUGS (17)
  1. LEVOFLOXACIN [Suspect]
     Active Substance: LEVOFLOXACIN
     Indication: Urinary tract infection
     Dosage: 1ST COURSE 500 MG EVERY 48 H FOR 10 DAYS
     Route: 065
  2. LEVOFLOXACIN [Suspect]
     Active Substance: LEVOFLOXACIN
     Indication: Pyelonephritis
     Dosage: 2ND COURSE 500 MG EVERY 48 H FOR 10 DAYS
     Route: 065
  3. LEVOFLOXACIN [Suspect]
     Active Substance: LEVOFLOXACIN
     Dosage: 3 RD COURSE 250 MG EVERY 48 H FOR 12 DAYS
     Route: 065
  4. LISINOPRIL [Concomitant]
     Active Substance: LISINOPRIL
     Dosage: 5 MG DAILY
     Route: 065
  5. TACROLIMUS [Concomitant]
     Active Substance: TACROLIMUS
     Indication: Immunosuppressant drug therapy
     Dosage: 4 MG, QD, EVERY MORNING
     Route: 065
  6. TACROLIMUS [Concomitant]
     Active Substance: TACROLIMUS
     Dosage: 3 MG EVERY EVENING
  7. FOLIC ACID [Concomitant]
     Active Substance: FOLIC ACID
     Dosage: 1 TABLET DAILY
     Route: 065
  8. DARBEPOETIN ALFA [Concomitant]
     Active Substance: DARBEPOETIN ALFA
     Dosage: 40 UG, 1X A WEEK
     Route: 042
  9. IRON SUCROSE [Concomitant]
     Active Substance: IRON SUCROSE
     Dosage: 100 MG, 1X A WEEK
     Route: 042
  10. CALCIUM CARBONATE [Concomitant]
     Active Substance: CALCIUM CARBONATE
     Dosage: 1000 MG, WITH MEALS
     Route: 065
  11. CALCIUM CARBONATE [Concomitant]
     Active Substance: CALCIUM CARBONATE
     Dosage: 1500 MG, AT BEDTIME
     Route: 065
  12. ETELCALCETIDE [Concomitant]
     Active Substance: ETELCALCETIDE
     Dosage: 5 MG WITH EACH DIALYSIS TREATMENT
     Route: 042
  13. CARVEDILOL [Concomitant]
     Active Substance: CARVEDILOL
     Dosage: 25 MG TWICE A DAY
     Route: 065
  14. PREDNISOLONE [Concomitant]
     Active Substance: PREDNISOLONE
     Indication: Immunosuppressant drug therapy
     Dosage: 5 MG, QD
     Route: 065
  15. CHOLECALCIFEROL [Concomitant]
     Active Substance: CHOLECALCIFEROL
     Dosage: 1000 IU, QD
     Route: 065
  16. SEVELAMER [Concomitant]
     Active Substance: SEVELAMER
     Dosage: 800 MG WITH MEALS
     Route: 065
  17. PARICALCITOL [Concomitant]
     Active Substance: PARICALCITOL
     Dosage: 2.5 UG WITH EACH DIALYSIS TREATMENT
     Route: 042

REACTIONS (5)
  - Pemphigoid [Recovered/Resolved]
  - Blister [Recovered/Resolved]
  - Rash macular [Recovered/Resolved]
  - Rash pruritic [Recovered/Resolved]
  - Condition aggravated [Recovered/Resolved]
